FAERS Safety Report 12189071 (Version 1)
Quarter: 2016Q1

REPORT INFORMATION
  Report Type: Spontaneous
  Country: US (occurrence: US)
  Receive Date: 20160317
  Receipt Date: 20160317
  Transmission Date: 20160526
  Serious: Yes (Other)
  Sender: FDA-Public Use
  Company Number: US-GLAXOSMITHKLINE-US2016037085

PATIENT
  Sex: Female

DRUGS (2)
  1. SORIATANE [Suspect]
     Active Substance: ACITRETIN
  2. ACITRETIN. [Suspect]
     Active Substance: ACITRETIN

REACTIONS (2)
  - Encephalopathy [Unknown]
  - Encephalitis [Unknown]
